FAERS Safety Report 23779067 (Version 1)
Quarter: 2024Q2

REPORT INFORMATION
  Report Type: Spontaneous
  Country: US (occurrence: None)
  Receive Date: 20240424
  Receipt Date: 20240424
  Transmission Date: 20240716
  Serious: Yes (Hospitalization)
  Sender: FDA-Public Use
  Company Number: None

PATIENT
  Age: 15 Year
  Sex: Female
  Weight: 46.5 kg

DRUGS (16)
  1. NIVOLUMAB [Suspect]
     Active Substance: NIVOLUMAB
     Indication: Alveolar rhabdomyosarcoma
     Dosage: OTHER FREQUENCY : EVERY FOUR WEEKS;?
     Route: 040
     Dates: start: 20231203
  2. NIVOLUMAB [Suspect]
     Active Substance: NIVOLUMAB
     Indication: Alveolar rhabdomyosarcoma
     Dosage: OTHER FREQUENCY : EVERY FOUR WEEKS;?
     Route: 040
     Dates: start: 20231203
  3. bisacodl [Concomitant]
     Dates: start: 202404, end: 20240421
  4. CETIRIZINE [Concomitant]
     Active Substance: CETIRIZINE HYDROCHLORIDE
     Dates: start: 20231221
  5. CHOLECALCIFEROL [Concomitant]
     Active Substance: CHOLECALCIFEROL
     Dates: start: 20231127
  6. DOCUSATE SODIUM [Concomitant]
     Active Substance: DOCUSATE SODIUM
     Dates: start: 202404
  7. FAMOTIDINE [Concomitant]
     Active Substance: FAMOTIDINE
     Dates: start: 20230801
  8. GADOBUTROL [Concomitant]
     Active Substance: GADOBUTROL
     Dates: start: 20240222
  9. GRANISETRON [Concomitant]
     Active Substance: GRANISETRON
     Dates: start: 20231224
  10. LACTULOSE [Concomitant]
     Active Substance: LACTULOSE
     Dates: start: 202404
  11. LORAZEPAM [Concomitant]
     Active Substance: LORAZEPAM
     Dates: start: 20231215
  12. METHYLNALTREXONE [Concomitant]
     Active Substance: METHYLNALTREXONE
     Dates: start: 202304
  13. PHENYLEPHRINE [Concomitant]
     Active Substance: PHENYLEPHRINE HYDROCHLORIDE
     Dates: start: 202404, end: 20240416
  14. polythylene [Concomitant]
     Dates: start: 20231220
  15. SENNOSIDES [Concomitant]
     Active Substance: SENNOSIDES
     Dates: start: 20231220
  16. TROPICAMIDE [Concomitant]
     Active Substance: TROPICAMIDE
     Dates: start: 202404, end: 20240416

REACTIONS (4)
  - Sjogren^s syndrome [None]
  - Sialoadenitis [None]
  - Pyrexia [None]
  - Eosinophilia [None]

NARRATIVE: CASE EVENT DATE: 20240412
